FAERS Safety Report 9401959 (Version 2)
Quarter: 2013Q3

REPORT INFORMATION
  Report Type: Spontaneous
  Country: US (occurrence: US)
  Receive Date: 20130716
  Receipt Date: 20130821
  Transmission Date: 20140515
  Serious: Yes (Other)
  Sender: FDA-Public Use
  Company Number: US-PFIZER INC-2013205409

PATIENT
  Age: 62 Year
  Sex: Female

DRUGS (11)
  1. LYRICA [Suspect]
     Indication: PAIN
     Dosage: UNK
  2. LANTUS [Concomitant]
     Dosage: 110 IU, 1X/DAY (DAILY)
  3. CRESTOR [Concomitant]
     Dosage: UNK
  4. METFORMIN [Concomitant]
     Dosage: UNK
  5. LISINOPRIL [Concomitant]
     Dosage: UNK
  6. CITALOPRAM [Concomitant]
     Dosage: UNK
  7. PENNSAID [Concomitant]
     Dosage: UNK
  8. TRAZODONE [Concomitant]
     Dosage: UNK
  9. TIZANIDINE [Concomitant]
     Dosage: UNK
  10. OMEPRAZOLE [Concomitant]
     Dosage: UNK
  11. VITAMIN D [Concomitant]
     Dosage: UNK

REACTIONS (2)
  - Dementia [Unknown]
  - Drug effect incomplete [Unknown]
